FAERS Safety Report 7243551-7 (Version None)
Quarter: 2011Q1

REPORT INFORMATION
  Report Type: 
  Country: None (occurrence: None)
  Receive Date: 20110125
  Receipt Date: 20110121
  Transmission Date: 20110831
  Serious: Yes (Other)
  Sender: FDA-Public Use
  Company Number: B0695588A

PATIENT
  Sex: Female

DRUGS (1)
  1. ALLI [Suspect]
     Route: 065

REACTIONS (3)
  - ABDOMINAL DISCOMFORT [None]
  - HAEMATOCHEZIA [None]
  - ABDOMINAL DISTENSION [None]
